FAERS Safety Report 23514048 (Version 1)
Quarter: 2024Q1

REPORT INFORMATION
  Report Type: Spontaneous
  Country: US (occurrence: None)
  Receive Date: 20240211
  Receipt Date: 20240211
  Transmission Date: 20240410
  Serious: Yes (Disabling)
  Sender: FDA-Public Use
  Company Number: None

PATIENT
  Age: 33 Year
  Sex: Male
  Weight: 117 kg

DRUGS (11)
  1. LUMATEPERONE [Suspect]
     Active Substance: LUMATEPERONE
     Indication: Depression
     Dosage: OTHER QUANTITY : 1 CAPSULE(S);?FREQUENCY : AT BEDTIME;?
     Route: 048
     Dates: start: 20231114
  2. LISINOPRIL [Concomitant]
     Active Substance: LISINOPRIL
  3. LAMICTAL [Concomitant]
     Active Substance: LAMOTRIGINE
  4. ELIQUIS [Concomitant]
     Active Substance: APIXABAN
  5. METOPROLOL [Concomitant]
     Active Substance: METOPROLOL
  6. ROSUVASTATIN [Concomitant]
     Active Substance: ROSUVASTATIN
  7. CAPLYTA [Concomitant]
     Active Substance: LUMATEPERONE
  8. ADDERALL [Concomitant]
     Active Substance: AMPHETAMINE ASPARTATE\AMPHETAMINE SULFATE\DEXTROAMPHETAMINE SACCHARATE\DEXTROAMPHETAMINE SULFATE
  9. VITAMIN D [Concomitant]
     Active Substance: VITAMIN D NOS
  10. MAGNESIUM [Concomitant]
     Active Substance: MAGNESIUM
  11. OMEGA-3 ACIDS [Concomitant]
     Active Substance: OMEGA-3 FATTY ACIDS

REACTIONS (4)
  - Suicide attempt [None]
  - Suicidal ideation [None]
  - Condition aggravated [None]
  - Respiratory tract infection [None]

NARRATIVE: CASE EVENT DATE: 20231215
